FAERS Safety Report 7377253-3 (Version None)
Quarter: 2011Q1

REPORT INFORMATION
  Report Type: 
  Country: None (occurrence: None)
  Receive Date: 20110315
  Receipt Date: 20110309
  Transmission Date: 20110831
  Serious: Yes (Other)
  Sender: FDA-Public Use
  Company Number: ACO_21501_2011

PATIENT
  Age: 63 Year
  Sex: Female

DRUGS (11)
  1. AMPYRA [Suspect]
     Indication: PRODUCT USED FOR UNKNOWN INDICATION
     Dosage: 10 MG, DAILY, ORAL ; 10 MG, BID, ORAL
     Route: 048
     Dates: start: 20101205, end: 20101201
  2. AMPYRA [Suspect]
     Indication: PRODUCT USED FOR UNKNOWN INDICATION
     Dosage: 10 MG, DAILY, ORAL ; 10 MG, BID, ORAL
     Route: 048
     Dates: start: 20101201, end: 20110108
  3. MULTI-VIT (VITAMINS NOS) [Concomitant]
  4. SANCTURA [Concomitant]
  5. ASPIRIN [Concomitant]
  6. AMANTADINE HCL [Concomitant]
  7. ARICEPT [Concomitant]
  8. BONIVA [Concomitant]
  9. CALCIUM (CALCIUM) [Concomitant]
  10. CENTRUM SILVER /01292501/ (ASCORBIC ACID, CALCIUM, MINERALS NOS, RETIN [Concomitant]
  11. TROSPIUM (TROSPIUM) [Concomitant]

REACTIONS (3)
  - CONVULSION [None]
  - INAPPROPRIATE SCHEDULE OF DRUG ADMINISTRATION [None]
  - TONGUE BITING [None]
